FAERS Safety Report 20167427 (Version 1)
Quarter: 2021Q4

REPORT INFORMATION
  Report Type: Spontaneous
  Country: US (occurrence: US)
  Receive Date: 20211209
  Receipt Date: 20211209
  Transmission Date: 20220303
  Serious: Yes (Other)
  Sender: FDA-Public Use
  Company Number: US-Blueprint Medicines Corporation-SP-US-2021-002432

PATIENT
  Age: 42 Year
  Sex: Female

DRUGS (1)
  1. AYVAKIT [Suspect]
     Active Substance: AVAPRITINIB
     Indication: Systemic mastocytosis
     Route: 048
     Dates: start: 20211011

REACTIONS (6)
  - Cellulitis [Unknown]
  - Illness [Unknown]
  - Gastrointestinal disorder [Unknown]
  - Abscess [Unknown]
  - Eye swelling [Unknown]
  - Fatigue [Unknown]

NARRATIVE: CASE EVENT DATE: 20211123
